FAERS Safety Report 9125018 (Version 2)
Quarter: 2013Q2

REPORT INFORMATION
  Report Type: Spontaneous
  Country: DK (occurrence: DK)
  Receive Date: 20130121
  Receipt Date: 20130521
  Transmission Date: 20140414
  Serious: Yes (Other)
  Sender: FDA-Public Use
  Company Number: PHHY2013DK004730

PATIENT
  Age: 54 Year
  Sex: Female

DRUGS (3)
  1. SERTRALIN HEXAL [Suspect]
     Indication: DEPRESSION
     Dosage: 50 MG, QD
     Route: 048
     Dates: start: 2011
  2. QUESTRAN [Concomitant]
     Indication: DIARRHOEA
     Dates: start: 201106, end: 201108
  3. CHOLESTAGEL [Concomitant]
     Indication: DIARRHOEA
     Dates: start: 201108

REACTIONS (2)
  - Osteoporosis [Recovered/Resolved]
  - Wrist fracture [Recovered/Resolved]
